FAERS Safety Report 15994693 (Version 1)
Quarter: 2019Q1

REPORT INFORMATION
  Report Type: Spontaneous
  Country: US (occurrence: US)
  Receive Date: 20190221
  Receipt Date: 20190221
  Transmission Date: 20190418
  Serious: Yes (Other)
  Sender: FDA-Public Use
  Company Number: None

PATIENT
  Age: 23 Year
  Sex: Female
  Weight: 99 kg

DRUGS (2)
  1. ADVIL MIGRAINE [Concomitant]
     Active Substance: IBUPROFEN
  2. LABETALOL HIC 300 MG TABS [Suspect]
     Active Substance: LABETALOL HYDROCHLORIDE
     Indication: HYPERTENSION
     Dosage: ?          QUANTITY:90 TABLET(S);?
     Route: 048
     Dates: start: 20160229, end: 20181231

REACTIONS (4)
  - Premature labour [None]
  - Bradycardia neonatal [None]
  - Induced labour [None]
  - Laboratory test interference [None]

NARRATIVE: CASE EVENT DATE: 20180903
